FAERS Safety Report 8405708-9 (Version None)
Quarter: 2012Q2

REPORT INFORMATION
  Report Type: 
  Country: None (occurrence: None)
  Receive Date: 20120604
  Receipt Date: 20120521
  Transmission Date: 20120825
  Serious: Yes (Death, Hospitalization)
  Sender: FDA-Public Use
  Company Number: DE-RANBAXY-2010RR-34461

PATIENT
  Age: 81 Year
  Sex: Male
  Weight: 98 kg

DRUGS (23)
  1. CLINDAMYCIN [Suspect]
     Indication: PSOAS ABSCESS
     Dosage: 1 DF, QD
     Route: 048
     Dates: start: 20090319, end: 20090319
  2. ALDACTONE [Concomitant]
     Indication: ASCITES
     Dosage: 100 MG, QD
     Route: 048
     Dates: start: 20080701, end: 20090316
  3. DURAGESIC-100 [Concomitant]
     Indication: PRODUCT USED FOR UNKNOWN INDICATION
     Dosage: 12.5
     Route: 065
  4. CLINDAMYCIN [Suspect]
     Indication: SPONDYLITIS
     Dosage: 600 MG, TID
     Route: 048
     Dates: start: 20090204, end: 20090317
  5. RAMIPRIL [Concomitant]
     Dosage: UNK
     Dates: start: 20090316
  6. VANCOMYCIN [Suspect]
     Indication: ABSCESS
     Dosage: 1000 MG, BID
     Route: 042
     Dates: start: 20090319, end: 20090330
  7. BISOPROLOL FUMARATE [Concomitant]
     Indication: HYPERTENSION
     Dosage: 2.5 MG, QD
     Route: 048
     Dates: start: 20081201, end: 20090316
  8. ASPIRIN [Concomitant]
     Dosage: 500
     Route: 065
  9. NOVALGIN/SCH [Concomitant]
     Indication: PAIN
     Dosage: 500 MG, QD
     Route: 048
     Dates: start: 20090201
  10. VANCOMYCIN [Suspect]
     Indication: SPONDYLITIS
  11. RAMIPRIL [Concomitant]
     Indication: HYPERTENSION
     Dosage: 2.5 MG, BID
     Route: 048
     Dates: start: 20081201, end: 20090315
  12. ALDACTONE [Concomitant]
     Dosage: UNK
  13. TAMSULOSIN HCL [Concomitant]
     Indication: BENIGN PROSTATIC HYPERPLASIA
     Dosage: 0.4 MG, QD
     Route: 048
     Dates: start: 20080701
  14. PERENTEROL [Concomitant]
     Indication: DISBACTERIOSIS
     Dosage: 50 MG, BID
     Route: 048
     Dates: start: 20090201, end: 20090408
  15. ASPIRIN [Concomitant]
     Indication: CARDIOVASCULAR EVENT PROPHYLAXIS
     Dosage: 100 MG, QD
     Route: 048
     Dates: start: 19900101, end: 20090318
  16. ESCITALOPRAM [Concomitant]
     Indication: RESTLESSNESS
     Dosage: 20 MG, QD
     Route: 048
     Dates: start: 20090201
  17. CLINDAMYCIN [Suspect]
     Dosage: 1 DF, BID
     Route: 048
     Dates: start: 20090320, end: 20090320
  18. COLDASTOP [Concomitant]
     Indication: EPISTAXIS
     Dosage: 1 DF, TID
     Route: 045
     Dates: start: 20090201
  19. ASPIRIN [Concomitant]
     Dosage: 100 UNK, UNK
     Route: 065
     Dates: start: 20090320
  20. CLONT 500 [Concomitant]
     Indication: PRODUCT USED FOR UNKNOWN INDICATION
     Dosage: 500
     Route: 065
     Dates: start: 20090318, end: 20090325
  21. TOREM/GFR [Concomitant]
     Indication: HYPERTENSION
     Dosage: UNK
     Route: 048
     Dates: start: 20080701
  22. TOREM/GFR [Concomitant]
     Dosage: UNK
     Route: 065
     Dates: start: 20090316
  23. FLUPIRTINE MALEATE [Concomitant]
     Indication: PRODUCT USED FOR UNKNOWN INDICATION
     Dosage: 100
     Route: 065

REACTIONS (2)
  - PSEUDOMEMBRANOUS COLITIS [None]
  - RENAL FAILURE ACUTE [None]
